FAERS Safety Report 23094903 (Version 1)
Quarter: 2023Q4

REPORT INFORMATION
  Report Type: Spontaneous
  Country: US (occurrence: US)
  Receive Date: 20231023
  Receipt Date: 20231023
  Transmission Date: 20240109
  Serious: Yes (Other)
  Sender: FDA-Public Use
  Company Number: US-BRISTOL-MYERS SQUIBB COMPANY-2023-150305

PATIENT
  Age: 68 Year
  Sex: Male

DRUGS (2)
  1. REVLIMID [Suspect]
     Active Substance: LENALIDOMIDE
     Indication: Plasma cell myeloma
     Dosage: FREQUENCY- TAKE 1 CAPSULE BY MOUTH DAILY FOR 14 DAYS FOLLOWED BY 7 DAYS OFF
     Route: 048
     Dates: start: 20221021
  2. REVLIMID [Suspect]
     Active Substance: LENALIDOMIDE
     Dates: start: 20231018

REACTIONS (2)
  - Gastrointestinal disorder [Unknown]
  - Off label use [Unknown]
